FAERS Safety Report 9091646 (Version 1)
Quarter: 2013Q1

REPORT INFORMATION
  Report Type: Report from Study
  Country: US (occurrence: US)
  Receive Date: 20130201
  Receipt Date: 20130201
  Transmission Date: 20140127
  Serious: No
  Sender: FDA-Public Use
  Company Number: US-ABBOTT-12P-163-1020553-00

PATIENT
  Age: 56 Year
  Sex: Male

DRUGS (17)
  1. HUMIRA [Suspect]
     Indication: RHEUMATOID ARTHRITIS
  2. AMLODIPINE [Concomitant]
     Indication: HYPERTENSION
  3. LISINOPRIL [Concomitant]
     Indication: HYPERTENSION
  4. TRAMADOL [Concomitant]
     Indication: PAIN
  5. AMBIEN [Concomitant]
     Indication: INSOMNIA
  6. CLONAZEPAM [Concomitant]
     Indication: ANXIETY
  7. PRILOSEC [Concomitant]
     Indication: DYSPEPSIA
  8. BABY ASPIRIN [Concomitant]
     Indication: ANTICOAGULANT THERAPY
  9. COQ10 [Concomitant]
     Indication: PRODUCT USED FOR UNKNOWN INDICATION
  10. CHROMIUM PICOLINATE [Concomitant]
     Indication: PRODUCT USED FOR UNKNOWN INDICATION
  11. VITAMIN D [Concomitant]
     Indication: PRODUCT USED FOR UNKNOWN INDICATION
  12. WELLBUTRIN [Concomitant]
     Indication: DEPRESSION
  13. WELLBUTRIN [Concomitant]
     Indication: ANXIETY
  14. VOLTAREN [Concomitant]
     Indication: JOINT SWELLING
     Dosage: ONLY USES PERIODICALLY BECAUSE IT IS EXPENSIVE
  15. METHOTREXATE [Concomitant]
     Indication: PRODUCT USED FOR UNKNOWN INDICATION
     Dosage: 5 PILLS WEEKLY
  16. DOXAZOSIN [Concomitant]
     Indication: BLOOD PRESSURE
     Dosage: EVERY NIGHT
  17. CELEBREX [Concomitant]
     Indication: PRODUCT USED FOR UNKNOWN INDICATION

REACTIONS (1)
  - Gingival infection [Not Recovered/Not Resolved]
